FAERS Safety Report 25161543 (Version 3)
Quarter: 2025Q4

REPORT INFORMATION
  Report Type: Spontaneous
  Country: JP (occurrence: JP)
  Receive Date: 20250404
  Receipt Date: 20251215
  Transmission Date: 20260117
  Serious: Yes (Other)
  Sender: ALEXION PHARMACEUTICALS
  Company Number: JP-ASTRAZENECA-250030556_012620_P_1

PATIENT

DRUGS (4)
  1. TRUQAP [4]
     Active Substance: CAPIVASERTIB
     Indication: Breast cancer
     Dosage: DOSE UNKNOWN, ON A 4-DAY-ON, 3-DAY-OFF SCHEDULE
     Route: 061
  2. FULVESTRANT [4]
     Active Substance: FULVESTRANT
     Indication: Breast cancer
     Dosage: 250 MILLIGRAM
  3. FULVESTRANT [4]
     Active Substance: FULVESTRANT
  4. UNSPECIFIED INGREDIENT [Suspect]
     Active Substance: UNSPECIFIED INGREDIENT

REACTIONS (1)
  - Fulminant type 1 diabetes mellitus [Unknown]
